FAERS Safety Report 7986358-5 (Version None)
Quarter: 2011Q4

REPORT INFORMATION
  Report Type: 
  Country: None (occurrence: None)
  Receive Date: 20111216
  Receipt Date: 20101206
  Transmission Date: 20120403
  Serious: No
  Sender: FDA-Public Use
  Company Number: US-GLAXOSMITHKLINE-A0897994A

PATIENT
  Age: 71 Year
  Sex: Female

DRUGS (8)
  1. VITAMIN TAB [Concomitant]
  2. DIOVAN [Concomitant]
  3. KLONOPIN [Concomitant]
  4. DIGESTIVE ENZYMES [Concomitant]
  5. SOMA [Concomitant]
  6. VICODIN [Concomitant]
  7. COREG CR [Suspect]
     Indication: HYPERTENSION
     Dosage: 20MG AT NIGHT
     Route: 048
     Dates: start: 20101202
  8. COENZYME Q10 [Concomitant]

REACTIONS (1)
  - HYPOAESTHESIA [None]
